FAERS Safety Report 18899501 (Version 2)
Quarter: 2021Q1

REPORT INFORMATION
  Report Type: Report from Study
  Country: None (occurrence: US)
  Receive Date: 20210216
  Receipt Date: 20210222
  Transmission Date: 20210420
  Serious: Yes (Other)
  Sender: FDA-Public Use
  Company Number: US-BIOVITRUM-2020US6625

PATIENT
  Age: 54 Year
  Sex: Female

DRUGS (2)
  1. KINERET [Suspect]
     Active Substance: ANAKINRA
     Indication: URTICARIA
     Route: 058
     Dates: start: 20200819
  2. KINERET [Suspect]
     Active Substance: ANAKINRA
     Indication: AUTOIMMUNE HAEMOLYTIC ANAEMIA

REACTIONS (10)
  - Cerebral arteriosclerosis [Unknown]
  - Stress [Unknown]
  - Depression [Unknown]
  - Cerebrovascular accident [Unknown]
  - Off label use [Unknown]
  - Appendicitis [Unknown]
  - Sepsis [Unknown]
  - Aneurysm [Unknown]
  - Nervous system disorder [Unknown]
  - Emotional disorder [Unknown]

NARRATIVE: CASE EVENT DATE: 20200819
